FAERS Safety Report 12922758 (Version 1)
Quarter: 2016Q4

REPORT INFORMATION
  Report Type: Spontaneous
  Country: AR (occurrence: AR)
  Receive Date: 20161108
  Receipt Date: 20161108
  Transmission Date: 20170207
  Serious: Yes (Hospitalization)
  Sender: FDA-Public Use
  Company Number: AR-ELI_LILLY_AND_COMPANY-AR201610009181

PATIENT
  Age: 0 Day
  Weight: 2.45 kg

DRUGS (2)
  1. HUMULIN N [Suspect]
     Active Substance: INSULIN HUMAN
     Indication: GESTATIONAL DIABETES
     Dosage: 4 U, TID
     Route: 064
     Dates: start: 20160707, end: 20161025
  2. NOVORAPID [Concomitant]
     Active Substance: INSULIN ASPART
     Indication: GESTATIONAL DIABETES
     Dosage: UNK
     Dates: end: 20160823

REACTIONS (2)
  - Premature baby [Recovered/Resolved]
  - Foetal exposure during pregnancy [Recovered/Resolved]

NARRATIVE: CASE EVENT DATE: 20160823
